FAERS Safety Report 8274710-2 (Version None)
Quarter: 2012Q2

REPORT INFORMATION
  Report Type: 
  Country: None (occurrence: None)
  Receive Date: 20120411
  Receipt Date: 20120405
  Transmission Date: 20120825
  Serious: No
  Sender: FDA-Public Use
  Company Number: US-PFIZER INC-2012086768

PATIENT
  Sex: Female
  Weight: 72.6 kg

DRUGS (4)
  1. LIPITOR [Suspect]
     Indication: BLOOD CHOLESTEROL ABNORMAL
     Dosage: UNK
  2. ESTRING [Suspect]
     Indication: URINARY INCONTINENCE
  3. ESTROGENS [Concomitant]
     Dosage: UNK
  4. ESTRING [Suspect]
     Indication: VULVOVAGINAL DRYNESS
     Dosage: UNK
     Route: 067
     Dates: start: 20110101

REACTIONS (6)
  - ABDOMINAL DISTENSION [None]
  - HOT FLUSH [None]
  - ABDOMINAL PAIN [None]
  - MUSCLE SPASMS [None]
  - INSOMNIA [None]
  - MIDDLE INSOMNIA [None]
